FAERS Safety Report 14763635 (Version 1)
Quarter: 2018Q2

REPORT INFORMATION
  Report Type: Spontaneous
  Country: US (occurrence: US)
  Receive Date: 20180416
  Receipt Date: 20180416
  Transmission Date: 20180711
  Serious: Yes (Hospitalization)
  Sender: FDA-Public Use
  Company Number: US-JNJFOC-20180414350

PATIENT
  Age: 32 Year
  Sex: Male

DRUGS (2)
  1. INVOKANA [Suspect]
     Active Substance: CANAGLIFLOZIN
     Indication: PRODUCT USED FOR UNKNOWN INDICATION
     Route: 048
     Dates: start: 20170503, end: 20170602
  2. INVOKANA [Suspect]
     Active Substance: CANAGLIFLOZIN
     Indication: PRODUCT USED FOR UNKNOWN INDICATION
     Route: 048
     Dates: start: 20150112, end: 20150827

REACTIONS (6)
  - Osteomyelitis [Unknown]
  - Toe amputation [Unknown]
  - Diabetic foot [Not Recovered/Not Resolved]
  - Foot amputation [Unknown]
  - Gangrene [Unknown]
  - Cellulitis [Unknown]

NARRATIVE: CASE EVENT DATE: 20170428
